FAERS Safety Report 7104674-6 (Version None)
Quarter: 2010Q4

REPORT INFORMATION
  Report Type: 
  Country: None (occurrence: None)
  Receive Date: 20101116
  Receipt Date: 20100701
  Transmission Date: 20110411
  Serious: Yes (Hospitalization, Other)
  Sender: FDA-Public Use
  Company Number: US-BAYER-200941881NA

PATIENT
  Age: 28 Year
  Sex: Female
  Weight: 68 kg

DRUGS (3)
  1. YASMIN [Suspect]
     Indication: PREMENSTRUAL SYNDROME
     Route: 048
     Dates: start: 20040501, end: 20050901
  2. KARIVA [Concomitant]
  3. LORAZEPAM [Concomitant]

REACTIONS (8)
  - ARTHRALGIA [None]
  - DEEP VEIN THROMBOSIS [None]
  - LIMB DISCOMFORT [None]
  - PAIN IN EXTREMITY [None]
  - TENDERNESS [None]
  - THROMBOPHLEBITIS [None]
  - VASODILATATION [None]
  - VENOUS INSUFFICIENCY [None]
